FAERS Safety Report 4656763-3 (Version None)
Quarter: 2005Q2

REPORT INFORMATION
  Report Type: 
  Country: None (occurrence: None)
  Receive Date: 20050506
  Receipt Date: 20050427
  Transmission Date: 20051028
  Serious: Yes (Life-Threatening, Hospitalization)
  Sender: FDA-Public Use
  Company Number: 2005-03-1578

PATIENT
  Age: 70 Year
  Sex: Male
  Weight: 68 kg

DRUGS (1)
  1. CELESTAMINE TAB [Suspect]
     Indication: CHRONIC SINUSITIS
     Dosage: 1 TAB DAILY ORAL
     Route: 048
     Dates: start: 20010101, end: 20041001

REACTIONS (2)
  - AUTOIMMUNE HEPATITIS [None]
  - HEPATITIS ACUTE [None]
